APPROVED DRUG PRODUCT: REZZAYO
Active Ingredient: REZAFUNGIN ACETATE
Strength: EQ 200MG BASE/VIAL
Dosage Form/Route: POWDER;INTRAVENOUS
Application: N217417 | Product #001
Applicant: MUNDIPHARMA GMBH
Approved: Mar 22, 2023 | RLD: Yes | RS: Yes | Type: RX

PATENTS:
Patent 10702573 | Expires: Mar 14, 2033
Patent 9526835 | Expires: Mar 14, 2033
Patent 8722619 | Expires: Mar 2, 2032
Patent 11197909 | Expires: Jul 14, 2038
Patent 11654196 | Expires: Mar 2, 2032
Patent 11712459 | Expires: Mar 15, 2037
Patent 11819533 | Expires: Jul 11, 2038

EXCLUSIVITY:
Code: NCE | Date: Mar 22, 2028
Code: ODE-426 | Date: Mar 22, 2030
Code: GAIN | Date: Mar 22, 2035
Code: GAIN | Date: Mar 22, 2033